FAERS Safety Report 20696978 (Version 1)
Quarter: 2022Q2

REPORT INFORMATION
  Report Type: Spontaneous
  Country: US (occurrence: US)
  Receive Date: 20220411
  Receipt Date: 20220411
  Transmission Date: 20220721
  Serious: No
  Sender: FDA-Public Use
  Company Number: US-SUNOVION-2022SUN001096

PATIENT
  Age: 65 Year
  Sex: Female

DRUGS (1)
  1. LATUDA [Suspect]
     Active Substance: LURASIDONE HYDROCHLORIDE
     Indication: Bipolar I disorder
     Dosage: 60 MG, QD
     Route: 048
     Dates: start: 201505

REACTIONS (5)
  - Thinking abnormal [Unknown]
  - Confusional state [Unknown]
  - Sleep disorder [Not Recovered/Not Resolved]
  - Anxiety [Unknown]
  - Therapy interrupted [Unknown]

NARRATIVE: CASE EVENT DATE: 20150501
